FAERS Safety Report 10868176 (Version 1)
Quarter: 2015Q1

REPORT INFORMATION
  Report Type: Report from Study
  Country: CN (occurrence: CN)
  Receive Date: 20150225
  Receipt Date: 20150225
  Transmission Date: 20150721
  Serious: Yes (Other)
  Sender: FDA-Public Use
  Company Number: CN-GLAXOSMITHKLINE-CN2015GSK024924

PATIENT
  Age: 24 Year
  Sex: Male

DRUGS (1)
  1. LAMIVUDINE. [Suspect]
     Active Substance: LAMIVUDINE
     Indication: HEPATITIS B
     Dosage: 100 MG, UNK
     Route: 065

REACTIONS (4)
  - Mitochondrial cytopathy [Recovered/Resolved]
  - Mitochondrial DNA depletion [Recovered/Resolved]
  - Nerve injury [Recovered/Resolved]
  - Neuromyopathy [Recovered/Resolved]
